FAERS Safety Report 9628615 (Version 3)
Quarter: 2013Q4

REPORT INFORMATION
  Report Type: Report from Study
  Country: CA (occurrence: CA)
  Receive Date: 20131017
  Receipt Date: 20131203
  Transmission Date: 20140711
  Serious: Yes (Other)
  Sender: FDA-Public Use
  Company Number: PHHY2013CA093732

PATIENT
  Age: 63 Year
  Sex: Male

DRUGS (9)
  1. GILENYA [Suspect]
     Indication: RELAPSING-REMITTING MULTIPLE SCLEROSIS
     Dosage: 0.5 MG, QD
     Route: 048
     Dates: start: 20130827
  2. COSOPT [Concomitant]
  3. VITAMIN D [Concomitant]
  4. SYNTHROID [Concomitant]
     Dosage: 0.125 MG, QD
  5. ATORVASTATIN [Concomitant]
     Dosage: 20 MG, QD
  6. QUETIAPINE [Concomitant]
  7. ATIVAN [Concomitant]
     Dosage: 1 MG, PRN
  8. SALBUTAMOL [Concomitant]
  9. MULTI-VIT [Concomitant]

REACTIONS (4)
  - Atrioventricular block first degree [Recovered/Resolved]
  - Sinus bradycardia [Recovered/Resolved]
  - Chest discomfort [Recovered/Resolved]
  - Dyspnoea [Recovered/Resolved]
